FAERS Safety Report 22620760 (Version 3)
Quarter: 2025Q4

REPORT INFORMATION
  Report Type: Spontaneous
  Country: EU (occurrence: EU)
  Receive Date: 20230620
  Receipt Date: 20251105
  Transmission Date: 20260118
  Serious: Yes (Other)
  Sender: MYLAN
  Company Number: EU-ORGANON-O2305ESP002637

PATIENT
  Sex: Female

DRUGS (16)
  1. PANTOPRAZOLE [Suspect]
     Active Substance: PANTOPRAZOLE
     Indication: Product used for unknown indication
     Dosage: UNK
  2. PANTOPRAZOLE [Suspect]
     Active Substance: PANTOPRAZOLE
     Dosage: UNK
     Route: 065
  3. PANTOPRAZOLE [Suspect]
     Active Substance: PANTOPRAZOLE
     Dosage: UNK
     Route: 065
  4. PANTOPRAZOLE [Suspect]
     Active Substance: PANTOPRAZOLE
     Dosage: UNK
  5. BISOPROLOL FUMARATE [Suspect]
     Active Substance: BISOPROLOL FUMARATE
     Indication: Product used for unknown indication
     Dosage: UNK
  6. BISOPROLOL FUMARATE [Suspect]
     Active Substance: BISOPROLOL FUMARATE
     Dosage: UNK
     Route: 065
  7. BISOPROLOL FUMARATE [Suspect]
     Active Substance: BISOPROLOL FUMARATE
     Dosage: UNK
     Route: 065
  8. BISOPROLOL FUMARATE [Suspect]
     Active Substance: BISOPROLOL FUMARATE
     Dosage: UNK
  9. EZETIMIBE [Suspect]
     Active Substance: EZETIMIBE
     Indication: Product used for unknown indication
     Dosage: UNK
  10. EZETIMIBE [Suspect]
     Active Substance: EZETIMIBE
     Dosage: UNK
     Route: 048
  11. EZETIMIBE [Suspect]
     Active Substance: EZETIMIBE
     Dosage: UNK
     Route: 048
  12. EZETIMIBE [Suspect]
     Active Substance: EZETIMIBE
     Dosage: UNK
  13. ASPIRIN\ATORVASTATIN CALCIUM\RAMIPRIL [Suspect]
     Active Substance: ASPIRIN\ATORVASTATIN CALCIUM\RAMIPRIL
     Indication: Product used for unknown indication
     Dosage: UNK
  14. ASPIRIN\ATORVASTATIN CALCIUM\RAMIPRIL [Suspect]
     Active Substance: ASPIRIN\ATORVASTATIN CALCIUM\RAMIPRIL
     Dosage: UNK
     Route: 065
  15. ASPIRIN\ATORVASTATIN CALCIUM\RAMIPRIL [Suspect]
     Active Substance: ASPIRIN\ATORVASTATIN CALCIUM\RAMIPRIL
     Dosage: UNK
     Route: 065
  16. ASPIRIN\ATORVASTATIN CALCIUM\RAMIPRIL [Suspect]
     Active Substance: ASPIRIN\ATORVASTATIN CALCIUM\RAMIPRIL
     Dosage: UNK

REACTIONS (4)
  - Haematochezia [Unknown]
  - Hiatus hernia [Unknown]
  - Diarrhoea [Recovered/Resolved]
  - Flatulence [Not Recovered/Not Resolved]

NARRATIVE: CASE EVENT DATE: 20220101
